FAERS Safety Report 11745179 (Version 1)
Quarter: 2015Q4

REPORT INFORMATION
  Report Type: Spontaneous
  Country: US (occurrence: US)
  Receive Date: 20151117
  Receipt Date: 20151117
  Transmission Date: 20160304
  Serious: Yes (Hospitalization)
  Sender: FDA-Public Use
  Company Number: US-BEH-2015055674

PATIENT
  Age: 72 Year
  Sex: Female
  Weight: 90 kg

DRUGS (17)
  1. HIZENTRA [Suspect]
     Active Substance: HUMAN IMMUNOGLOBULIN G
     Route: 058
  2. LEXAPRO [Concomitant]
     Active Substance: ESCITALOPRAM OXALATE
  3. LIPITOR [Concomitant]
     Active Substance: ATORVASTATIN CALCIUM
  4. HIZENTRA [Suspect]
     Active Substance: HUMAN IMMUNOGLOBULIN G
     Indication: IMMUNODEFICIENCY COMMON VARIABLE
     Route: 058
  5. HYDROCHLOROTHIAZIDE. [Concomitant]
     Active Substance: HYDROCHLOROTHIAZIDE
  6. DOXEPIN [Concomitant]
     Active Substance: DOXEPIN
  7. CVS VITAMIN D3 [Concomitant]
  8. HIZENTRA [Suspect]
     Active Substance: HUMAN IMMUNOGLOBULIN G
     Route: 058
  9. HIZENTRA [Suspect]
     Active Substance: HUMAN IMMUNOGLOBULIN G
     Dates: start: 20110813
  10. CALCIUM [Concomitant]
     Active Substance: CALCIUM
  11. SOMA [Concomitant]
     Active Substance: CARISOPRODOL
  12. AMBIEN [Concomitant]
     Active Substance: ZOLPIDEM TARTRATE
  13. ALVESCO [Concomitant]
     Active Substance: CICLESONIDE
  14. OMEPRAZOLE. [Concomitant]
     Active Substance: OMEPRAZOLE
  15. LOPERAMIDE [Concomitant]
     Active Substance: LOPERAMIDE
  16. ALLOPURINOL. [Concomitant]
     Active Substance: ALLOPURINOL
  17. LEVOTHYROXINE. [Concomitant]
     Active Substance: LEVOTHYROXINE

REACTIONS (2)
  - Joint dislocation [Unknown]
  - Transient global amnesia [Unknown]

NARRATIVE: CASE EVENT DATE: 20151020
